FAERS Safety Report 8075597-3 (Version None)
Quarter: 2012Q1

REPORT INFORMATION
  Report Type: 
  Country: None (occurrence: None)
  Receive Date: 20120117
  Receipt Date: 20120111
  Transmission Date: 20120608
  Serious: Yes (Death, Other)
  Sender: FDA-Public Use
  Company Number: AUR-APL-2012-00455

PATIENT
  Age: 85 Year
  Sex: Male
  Weight: 61 kg

DRUGS (5)
  1. PERINDOPRIL ERBUMINE [Suspect]
     Indication: HYPERTENSION
     Dosage: (2 MG),ORAL ; (4 MG),ORAL
     Route: 048
     Dates: start: 20111114
  2. PERINDOPRIL ERBUMINE [Suspect]
     Indication: HYPERTENSION
     Dosage: (2 MG),ORAL ; (4 MG),ORAL
     Route: 048
     Dates: start: 20111103, end: 20111113
  3. CETIRIZINE [Concomitant]
  4. VALSARTAN [Concomitant]
  5. BENDROFLUAZIDE (BENDROFLUMETHAZIDE) [Concomitant]

REACTIONS (3)
  - BLOOD SODIUM DECREASED [None]
  - SUDDEN DEATH [None]
  - FALL [None]
